FAERS Safety Report 7493902-3 (Version None)
Quarter: 2011Q2

REPORT INFORMATION
  Report Type: 
  Country: None (occurrence: None)
  Receive Date: 20110520
  Receipt Date: 20110510
  Transmission Date: 20111010
  Serious: Yes (Life-Threatening, Hospitalization)
  Sender: FDA-Public Use
  Company Number: PL-ROCHE-774218

PATIENT
  Age: 52 Year
  Sex: Female

DRUGS (2)
  1. ENCORTON [Concomitant]
     Indication: GLOMERULONEPHRITIS
     Dosage: VARIOUS DOSES, RECENTLY: 35 MG
     Route: 048
     Dates: start: 20081101
  2. CELLCEPT [Suspect]
     Indication: GLOMERULONEPHRITIS
     Dosage: 2 X 1000 MG.  ONLY IN PEROID FROM APRIL 2009 TO MAY 2009 THE DOSE REDUCED TO 2 X 500MG, DISCONTINUED
     Route: 048
     Dates: start: 20090707, end: 20110423

REACTIONS (2)
  - ANAEMIA HAEMOLYTIC AUTOIMMUNE [None]
  - PYREXIA [None]
